FAERS Safety Report 5054236-X (Version None)
Quarter: 2006Q3

REPORT INFORMATION
  Report Type: 
  Country: None (occurrence: None)
  Receive Date: 20060713
  Receipt Date: 20060705
  Transmission Date: 20061208
  Serious: Yes (Hospitalization)
  Sender: FDA-Public Use
  Company Number: 200613088BWH

PATIENT
  Age: 81 Year
  Sex: Male
  Weight: 70.3075 kg

DRUGS (3)
  1. NEXAVAR [Suspect]
     Dosage: 200 MG, BID, ORAL; SEE IMAGE
     Route: 048
     Dates: start: 20060308, end: 20060326
  2. NEXAVAR [Suspect]
     Dosage: 200 MG, BID, ORAL; SEE IMAGE
     Route: 048
     Dates: start: 20060406, end: 20060601
  3. ALOPRIL [Concomitant]

REACTIONS (9)
  - BLOOD PRESSURE DECREASED [None]
  - DEHYDRATION [None]
  - DIARRHOEA [None]
  - DIET REFUSAL [None]
  - FATIGUE [None]
  - HYPERSOMNIA [None]
  - MALNUTRITION [None]
  - SKIN DISCOLOURATION [None]
  - SKIN EXFOLIATION [None]
